FAERS Safety Report 5680850-4 (Version None)
Quarter: 2008Q1

REPORT INFORMATION
  Report Type: 
  Country: None (occurrence: None)
  Receive Date: 20080326
  Receipt Date: 20080314
  Transmission Date: 20080703
  Serious: Yes (Other)
  Sender: FDA-Public Use
  Company Number: US-PFIZER INC-2008010304

PATIENT
  Sex: Female
  Weight: 65.8 kg

DRUGS (3)
  1. CHANTIX [Suspect]
     Indication: SMOKING CESSATION THERAPY
     Dates: start: 20070901, end: 20080101
  2. METHADON HCL TAB [Concomitant]
     Indication: DRUG DEPENDENCE
  3. DESYREL [Concomitant]
     Indication: SLEEP DISORDER

REACTIONS (7)
  - ANXIETY [None]
  - BLOOD GLUCOSE DECREASED [None]
  - DEPRESSED MOOD [None]
  - DIZZINESS [None]
  - FLUSHING [None]
  - NIGHTMARE [None]
  - PARANOIA [None]
